FAERS Safety Report 7789280-2 (Version None)
Quarter: 2011Q3

REPORT INFORMATION
  Report Type: 
  Country: None (occurrence: None)
  Receive Date: 20110930
  Receipt Date: 20110922
  Transmission Date: 20111222
  Serious: Yes (Congenital Anomaly)
  Sender: FDA-Public Use
  Company Number: DE-TEVA-302011GER

PATIENT
  Age: 0 Year
  Sex: Male
  Weight: 3.57 kg

DRUGS (2)
  1. FOLIO [Concomitant]
     Route: 064
  2. CITALOPRAM [Suspect]
     Route: 064

REACTIONS (2)
  - HAEMANGIOMA CONGENITAL [None]
  - ATRIAL SEPTAL DEFECT [None]
